FAERS Safety Report 14847797 (Version 1)
Quarter: 2018Q2

REPORT INFORMATION
  Report Type: Spontaneous
  Country: US (occurrence: US)
  Receive Date: 20180504
  Receipt Date: 20180504
  Transmission Date: 20180711
  Serious: No
  Sender: FDA-Public Use
  Company Number: US-GLAXOSMITHKLINE-US2018074515

PATIENT
  Age: 55 Year
  Sex: Female

DRUGS (1)
  1. FLONASE [Suspect]
     Active Substance: FLUTICASONE PROPIONATE
     Indication: HYPERSENSITIVITY
     Dosage: UNK
     Dates: start: 20180423, end: 20180424

REACTIONS (2)
  - Hypersensitivity [Unknown]
  - Migraine [Recovering/Resolving]

NARRATIVE: CASE EVENT DATE: 20180423
